FAERS Safety Report 21442577 (Version 1)
Quarter: 2022Q4

REPORT INFORMATION
  Report Type: Spontaneous
  Country: US (occurrence: US)
  Receive Date: 20221011
  Receipt Date: 20221011
  Transmission Date: 20230113
  Serious: No
  Sender: FDA-Public Use
  Company Number: US-TEVA-2022-US-2077599

PATIENT

DRUGS (1)
  1. AMPHETAMINE SULFATE\DEXTROAMPHETAMINE [Suspect]
     Active Substance: AMPHETAMINE SULFATE\DEXTROAMPHETAMINE
     Indication: Product used for unknown indication
     Route: 065
     Dates: start: 20220922

REACTIONS (6)
  - Product physical issue [Unknown]
  - Product physical consistency issue [Unknown]
  - Myalgia [Unknown]
  - Muscle tightness [Unknown]
  - Gastrointestinal sounds abnormal [Unknown]
  - Flatulence [Unknown]

NARRATIVE: CASE EVENT DATE: 20220922
